FAERS Safety Report 7176413-4 (Version None)
Quarter: 2010Q4

REPORT INFORMATION
  Report Type: 
  Country: None (occurrence: None)
  Receive Date: 20101220
  Receipt Date: 20101213
  Transmission Date: 20110411
  Serious: Yes (Hospitalization, Other)
  Sender: FDA-Public Use
  Company Number: US-RANBAXY-2010US-40345

PATIENT

DRUGS (3)
  1. CLINDAMYCIN [Suspect]
     Indication: GINGIVAL INFECTION
     Dosage: 300 MG, BID
     Route: 065
     Dates: start: 20101208, end: 20101210
  2. CLINDAMYCIN [Suspect]
     Dosage: 300 MG, TID
     Route: 065
     Dates: start: 20101208, end: 20101210
  3. CLINDAMYCIN [Suspect]
     Indication: TOOTH INFECTION
     Dosage: 150 MG, UNK
     Route: 065
     Dates: start: 20100223, end: 20100307

REACTIONS (12)
  - ABDOMINAL DISCOMFORT [None]
  - ASTHENIA [None]
  - BACK PAIN [None]
  - CARDIAC FLUTTER [None]
  - CHILLS [None]
  - CONTUSION [None]
  - FEAR [None]
  - HEADACHE [None]
  - HEART RATE INCREASED [None]
  - HYPOAESTHESIA [None]
  - JAW DISORDER [None]
  - PAIN [None]
